FAERS Safety Report 10653989 (Version 2)
Quarter: 2015Q1

REPORT INFORMATION
  Report Type: Spontaneous
  Country: JP (occurrence: JP)
  Receive Date: 20141216
  Receipt Date: 20150101
  Transmission Date: 20150720
  Serious: Yes (Hospitalization)
  Sender: FDA-Public Use
  Company Number: JP-ROCHE-1508844

PATIENT
  Age: 81 Year
  Sex: Female
  Weight: 55 kg

DRUGS (5)
  1. EDIROL [Suspect]
     Active Substance: ELDECALCITOL
     Indication: OSTEOPOROSIS
     Dosage: MOST RECENT DOSE ON 12/OCT/2014
     Route: 048
     Dates: start: 20120930
  2. NORVASC [Concomitant]
     Active Substance: AMLODIPINE BESYLATE
     Route: 048
     Dates: start: 20080401, end: 20141012
  3. LIVALO [Concomitant]
     Active Substance: PITAVASTATIN CALCIUM
     Route: 048
     Dates: start: 20050108, end: 20141012
  4. BONVIVA [Suspect]
     Active Substance: IBANDRONATE SODIUM
     Indication: OSTEOPOROSIS
     Dosage: MOST RECENT DOSE ON 12/OCT/2014.
     Route: 042
     Dates: start: 20131103
  5. CERCINE [Concomitant]
     Active Substance: DIAZEPAM
     Route: 048
     Dates: start: 20050108, end: 20141012

REACTIONS (1)
  - Thoracic vertebral fracture [Not Recovered/Not Resolved]

NARRATIVE: CASE EVENT DATE: 20141023
